FAERS Safety Report 16178841 (Version 1)
Quarter: 2019Q2

REPORT INFORMATION
  Report Type: Spontaneous
  Country: US (occurrence: US)
  Receive Date: 20190410
  Receipt Date: 20190410
  Transmission Date: 20190711
  Serious: No
  Sender: FDA-Public Use
  Company Number: US-SHIRE-US201910850

PATIENT
  Sex: Male
  Weight: 81.63 kg

DRUGS (9)
  1. FLONASE [Concomitant]
     Active Substance: FLUTICASONE PROPIONATE
     Indication: NASAL CONGESTION
  2. FLONASE [Concomitant]
     Active Substance: FLUTICASONE PROPIONATE
     Indication: HYPERSENSITIVITY
  3. SALINE NASAL MIST [Concomitant]
     Indication: EYE DISCHARGE
  4. NASAL SPRAY II [Concomitant]
     Indication: PRODUCT USED FOR UNKNOWN INDICATION
  5. XIIDRA [Suspect]
     Active Substance: LIFITEGRAST
     Indication: DRY EYE
     Dosage: 1 GTT DROPS, BOTH EYES, 2X/DAY:BID
     Route: 047
     Dates: start: 201806
  6. FLONASE [Concomitant]
     Active Substance: FLUTICASONE PROPIONATE
     Indication: WHEEZING
  7. ASTELIN [Concomitant]
     Active Substance: AZELASTINE HYDROCHLORIDE
     Indication: HYPERSENSITIVITY
  8. SINGULAIR [Concomitant]
     Active Substance: MONTELUKAST SODIUM
     Indication: HYPERSENSITIVITY
  9. CLARITONE [Concomitant]
     Indication: HYPERSENSITIVITY

REACTIONS (5)
  - Instillation site discharge [Unknown]
  - Product packaging issue [Unknown]
  - Off label use [Unknown]
  - Frustration tolerance decreased [Unknown]
  - Instillation site reaction [Unknown]

NARRATIVE: CASE EVENT DATE: 2018
